FAERS Safety Report 20383403 (Version 1)
Quarter: 2022Q1

REPORT INFORMATION
  Report Type: Spontaneous
  Country: IN (occurrence: IN)
  Receive Date: 20220127
  Receipt Date: 20220127
  Transmission Date: 20220423
  Serious: Yes (Death, Other)
  Sender: FDA-Public Use
  Company Number: IN-PFIZER INC-2021631416

PATIENT
  Age: 65 Year
  Sex: Male

DRUGS (6)
  1. SUTENT [Suspect]
     Active Substance: SUNITINIB MALATE
     Indication: Metastatic renal cell carcinoma
     Dosage: 37.5 MG, 1X/DAY
     Route: 048
     Dates: start: 20210529
  2. SUTENT [Suspect]
     Active Substance: SUNITINIB MALATE
     Dosage: 50 MG, 1X/DAY
  3. FOLVITE [FOLIC ACID] [Concomitant]
     Dosage: 1 DF, 1X/DAY
  4. LOOZ [Concomitant]
     Dosage: 30 ML
  5. ETORICOXIB [Concomitant]
     Active Substance: ETORICOXIB
     Dosage: UNK
  6. GRILINCTUS BM [Concomitant]
     Dosage: 10 ML, 3X/DAY

REACTIONS (6)
  - Death [Fatal]
  - Cough [Unknown]
  - Pyrexia [Recovered/Resolved]
  - Mucosal inflammation [Unknown]
  - Hypertension [Unknown]
  - Pain [Unknown]

NARRATIVE: CASE EVENT DATE: 20210701
